FAERS Safety Report 15974030 (Version 6)
Quarter: 2020Q2

REPORT INFORMATION
  Report Type: Report from Study
  Country: None (occurrence: FR)
  Receive Date: 20190217
  Receipt Date: 20200629
  Transmission Date: 20200713
  Serious: Yes (Death)
  Sender: FDA-Public Use
  Company Number: FR-ABBVIE-19K-056-2668897-00

PATIENT
  Age: 73 Year
  Sex: Male
  Weight: 60 kg

DRUGS (2)
  1. VENCLYXTO [Suspect]
     Active Substance: VENETOCLAX
     Route: 048
     Dates: start: 20181017, end: 20181023
  2. VENCLYXTO [Suspect]
     Active Substance: VENETOCLAX
     Indication: CHRONIC LYMPHOCYTIC LEUKAEMIA
     Route: 048
     Dates: start: 20181010, end: 20181016

REACTIONS (13)
  - Neurological decompensation [Not Recovered/Not Resolved]
  - Constipation [Unknown]
  - Hypocalcaemia [Recovered/Resolved]
  - Hyperuricaemia [Recovered/Resolved]
  - Richter^s syndrome [Fatal]
  - Pain [Not Recovered/Not Resolved]
  - Pyrexia [Unknown]
  - Progressive multifocal leukoencephalopathy [Fatal]
  - Urinary incontinence [Not Recovered/Not Resolved]
  - Anal incontinence [Not Recovered/Not Resolved]
  - Fall [Unknown]
  - Diarrhoea [Unknown]
  - Ecchymosis [Unknown]

NARRATIVE: CASE EVENT DATE: 201810
